FAERS Safety Report 21599477 (Version 1)
Quarter: 2022Q4

REPORT INFORMATION
  Report Type: Spontaneous
  Country: AU (occurrence: AU)
  Receive Date: 20221115
  Receipt Date: 20221115
  Transmission Date: 20230113
  Serious: Yes (Hospitalization)
  Sender: FDA-Public Use
  Company Number: AU-GE HEALTHCARE-2022CSU008169

PATIENT
  Age: 57 Year
  Sex: Male

DRUGS (2)
  1. OMNIPAQUE [Suspect]
     Active Substance: IOHEXOL
     Indication: Computerised tomogram kidney
     Dosage: 97 ML, SINGLE
     Route: 042
     Dates: start: 20221107, end: 20221107
  2. OMNIPAQUE [Suspect]
     Active Substance: IOHEXOL
     Indication: Renal disorder

REACTIONS (6)
  - Sneezing [Recovered/Resolved]
  - Throat tightness [Recovered/Resolved]
  - Dyspnoea [Recovered/Resolved]
  - Chest discomfort [Recovered/Resolved]
  - Conjunctival hyperaemia [Recovered/Resolved]
  - Cough [Recovered/Resolved]

NARRATIVE: CASE EVENT DATE: 20221107
